FAERS Safety Report 18334456 (Version 1)
Quarter: 2020Q3

REPORT INFORMATION
  Report Type: Spontaneous
  Country: US (occurrence: US)
  Receive Date: 20200930
  Receipt Date: 20200930
  Transmission Date: 20201103
  Serious: Yes (Hospitalization)
  Sender: FDA-Public Use
  Company Number: None

PATIENT
  Age: 54 Year
  Sex: Male

DRUGS (1)
  1. METOCLOPRAMIDE (METOCLOPRAMIDE HCL 5MG/ML INJ) [Suspect]
     Active Substance: METOCLOPRAMIDE HYDROCHLORIDE
     Indication: CARDIAC OPERATION
     Dates: start: 20200622, end: 20200622

REACTIONS (4)
  - Agitation [None]
  - Akinesia [None]
  - Anxiety [None]
  - Tardive dyskinesia [None]

NARRATIVE: CASE EVENT DATE: 20200622
